FAERS Safety Report 9548555 (Version 1)
Quarter: 2013Q2

REPORT INFORMATION
  Report Type: Spontaneous
  Country: US (occurrence: None)
  Receive Date: 20130627
  Receipt Date: 20130627
  Transmission Date: 20140414
  Serious: No
  Sender: FDA-Public Use
  Company Number: 1000044478

PATIENT
  Age: 51 Year
  Sex: Female

DRUGS (1)
  1. LINZESS [Suspect]
     Indication: CONSTIPATION
     Dosage: 145 MCG ( 145 MCG, 1 IN 1 D) ORAL
     Route: 048
     Dates: start: 20130322, end: 20130401

REACTIONS (2)
  - Rash [None]
  - Swelling face [None]
